FAERS Safety Report 7036212-0 (Version None)
Quarter: 2010Q4

REPORT INFORMATION
  Report Type: 
  Country: None (occurrence: None)
  Receive Date: 20101008
  Receipt Date: 20100927
  Transmission Date: 20110411
  Serious: Yes (Other)
  Sender: FDA-Public Use
  Company Number: GB-MYLANLABS-2010S1017793

PATIENT
  Age: 48 Year
  Sex: Female

DRUGS (6)
  1. PERGOLIDE [Suspect]
     Indication: PARKINSON'S DISEASE
  2. ROPINIROLE [Suspect]
     Indication: PARKINSON'S DISEASE
  3. LEVODOPA [Suspect]
     Indication: PARKINSON'S DISEASE
  4. LEVODOPA [Suspect]
  5. CABERGOLINE [Suspect]
     Indication: PARKINSON'S DISEASE
  6. ENTACAPONE [Suspect]
     Indication: PARKINSON'S DISEASE

REACTIONS (1)
  - DOPAMINE DYSREGULATION SYNDROME [None]
